FAERS Safety Report 11168739 (Version 2)
Quarter: 2015Q2

REPORT INFORMATION
  Report Type: Spontaneous
  Country: US (occurrence: US)
  Receive Date: 20150605
  Receipt Date: 20150612
  Transmission Date: 20150821
  Serious: Yes (Other)
  Sender: FDA-Public Use
  Company Number: US-BAYER-2015-289463

PATIENT
  Sex: Male

DRUGS (1)
  1. XOFIGO [Suspect]
     Active Substance: RADIUM RA-223 DICHLORIDE
     Indication: PROSTATE CANCER
     Dosage: UNK
     Dates: start: 201501

REACTIONS (5)
  - Palpitations [None]
  - Drug ineffective [None]
  - Atrial fibrillation [None]
  - Ischaemic stroke [Not Recovered/Not Resolved]
  - Transfusion [None]

NARRATIVE: CASE EVENT DATE: 20150324
